FAERS Safety Report 18302343 (Version 3)
Quarter: 2021Q1

REPORT INFORMATION
  Report Type: Report from Study
  Country: BR (occurrence: BR)
  Receive Date: 20200923
  Receipt Date: 20210101
  Transmission Date: 20210419
  Serious: Yes (Other)
  Sender: FDA-Public Use
  Company Number: NVSC2020BR257836

PATIENT
  Age: 30 Year
  Sex: Female
  Weight: 76 kg

DRUGS (8)
  1. FEMARA [Suspect]
     Active Substance: LETROZOLE
     Dosage: 2.5 MG, QD
     Route: 065
     Dates: start: 201905
  2. CODEX [Concomitant]
     Active Substance: ACETAMINOPHEN\CODEINE PHOSPHATE
     Indication: ANALGESIC THERAPY
     Dosage: 1 DF, Q6H
     Route: 048
  3. FEMARA [Suspect]
     Active Substance: LETROZOLE
     Dosage: 1 DF, QD  (1 TABLET PER DAY)
     Route: 048
     Dates: start: 20190430, end: 20201018
  4. ZOLPIDEM [Concomitant]
     Active Substance: ZOLPIDEM TARTRATE
     Indication: PRODUCT USED FOR UNKNOWN INDICATION
     Dosage: UNK (1 TABLET BEDTIME)
     Route: 065
  5. ZOMETA [Concomitant]
     Active Substance: ZOLEDRONIC ACID
     Indication: PRODUCT USED FOR UNKNOWN INDICATION
     Dosage: ONCE EVERY 3 MONTHS
     Route: 065
  6. LETROZOLE. [Concomitant]
     Active Substance: LETROZOLE
     Indication: PRODUCT USED FOR UNKNOWN INDICATION
     Route: 065
  7. ZOLADEX [Concomitant]
     Active Substance: GOSERELIN ACETATE
     Indication: HORMONE LEVEL ABNORMAL
     Dosage: ONCE EVERY 3 MONTHS
     Route: 058
     Dates: end: 20200724
  8. FEMARA [Suspect]
     Active Substance: LETROZOLE
     Indication: BREAST CANCER METASTATIC
     Dosage: 2.5 MG, QD
     Route: 048
     Dates: start: 20190313

REACTIONS (14)
  - Chest pain [Unknown]
  - Metastases to liver [Unknown]
  - Metastases to pelvis [Unknown]
  - Arthralgia [Unknown]
  - Metastases to lung [Unknown]
  - Bone pain [Unknown]
  - Metastases to bone [Unknown]
  - Metastasis [Unknown]
  - Metastases to spine [Unknown]
  - Headache [Unknown]
  - Pain in extremity [Unknown]
  - Back pain [Not Recovered/Not Resolved]
  - Tumour marker increased [Unknown]
  - Spinal pain [Unknown]

NARRATIVE: CASE EVENT DATE: 202006
